FAERS Safety Report 13752092 (Version 1)
Quarter: 2017Q3

REPORT INFORMATION
  Report Type: Spontaneous
  Country: US (occurrence: US)
  Receive Date: 20170713
  Receipt Date: 20170713
  Transmission Date: 20171127
  Serious: Yes (Death, Hospitalization)
  Sender: FDA-Public Use
  Company Number: US-UNITED THERAPEUTICS-UNT-2017-000685

PATIENT
  Age: 35 Year
  Sex: Female

DRUGS (1)
  1. REMODULIN [Suspect]
     Active Substance: TREPROSTINIL
     Indication: PULMONARY ARTERIAL HYPERTENSION
     Dosage: 5 MG/ML, CONTINUING
     Route: 041
     Dates: start: 201611

REACTIONS (3)
  - Portopulmonary hypertension [Fatal]
  - Pulmonary arterial hypertension [Fatal]
  - Catheter placement [Unknown]

NARRATIVE: CASE EVENT DATE: 20170115
